FAERS Safety Report 21986733 (Version 1)
Quarter: 2023Q1

REPORT INFORMATION
  Report Type: Spontaneous
  Country: US (occurrence: US)
  Receive Date: 20230213
  Receipt Date: 20230213
  Transmission Date: 20230417
  Serious: No
  Sender: FDA-Public Use
  Company Number: US-Emergent Biosolutions-23000020

PATIENT
  Sex: Female

DRUGS (1)
  1. NARCAN [Suspect]
     Active Substance: NALOXONE HYDROCHLORIDE
     Indication: Overdose
     Dosage: 4 MILLIGRAM, 2 ON ONE SIDE AND 3 ON THE OTHER SIDE OF NOSE WITHIN 2-3 MIN
     Route: 045
     Dates: start: 20230121, end: 20230121

REACTIONS (1)
  - Yawning [Unknown]

NARRATIVE: CASE EVENT DATE: 20230121
